FAERS Safety Report 25343725 (Version 1)
Quarter: 2025Q2

REPORT INFORMATION
  Report Type: Spontaneous
  Country: US (occurrence: None)
  Receive Date: 20250521
  Receipt Date: 20250521
  Transmission Date: 20250717
  Serious: Yes (Death)
  Sender: FDA-CTU
  Company Number: None

PATIENT
  Age: 43 Year
  Sex: Female
  Weight: 81.6 kg

DRUGS (2)
  1. DROPERIDOL [Suspect]
     Active Substance: DROPERIDOL
     Route: 042
     Dates: start: 20250318, end: 20250318
  2. Acetaminophen 650 mg PO [Concomitant]
     Dates: start: 20250318

REACTIONS (8)
  - Headache [None]
  - Nausea [None]
  - Vomiting [None]
  - Blood pressure increased [None]
  - Blood pressure decreased [None]
  - Resuscitation [None]
  - Pulse absent [None]
  - Cardio-respiratory arrest [None]

NARRATIVE: CASE EVENT DATE: 20250318
